FAERS Safety Report 23481794 (Version 1)
Quarter: 2024Q1

REPORT INFORMATION
  Report Type: Spontaneous
  Country: US (occurrence: US)
  Receive Date: 20240205
  Receipt Date: 20240205
  Transmission Date: 20240410
  Serious: No
  Sender: FDA-Public Use
  Company Number: US-IMMUNOCORE, LTD-2023-IMC-002116

PATIENT
  Age: 80 Year
  Sex: Female

DRUGS (2)
  1. KIMMTRAK [Suspect]
     Active Substance: TEBENTAFUSP-TEBN
     Indication: Product used for unknown indication
     Dosage: UNK, LAST DOSE
     Dates: start: 20231128
  2. KIMMTRAK [Suspect]
     Active Substance: TEBENTAFUSP-TEBN
     Dosage: UNK
     Dates: start: 20231201

REACTIONS (4)
  - Ejection fraction decreased [Recovering/Resolving]
  - Cardiac disorder [Recovering/Resolving]
  - Dyspnoea [Recovering/Resolving]
  - Peripheral swelling [Recovering/Resolving]

NARRATIVE: CASE EVENT DATE: 20231201
